FAERS Safety Report 4549548-X (Version None)
Quarter: 2005Q1

REPORT INFORMATION
  Report Type: 
  Country: None (occurrence: None)
  Receive Date: 20050111
  Receipt Date: 20050104
  Transmission Date: 20050727
  Serious: Yes (Death)
  Sender: FDA-Public Use
  Company Number: GB-ROCHE-391600

PATIENT
  Sex: Male
  Weight: 49.4 kg

DRUGS (2)
  1. ROACCUTANE [Suspect]
     Route: 048
     Dates: start: 19970224, end: 20000915
  2. PREDNISOLONE [Concomitant]
     Indication: ACNE CYSTIC
     Route: 061
     Dates: start: 19970224, end: 20000228

REACTIONS (1)
  - COMPLETED SUICIDE [None]
